FAERS Safety Report 6374030-7 (Version None)
Quarter: 2009Q3

REPORT INFORMATION
  Report Type: 
  Country: None (occurrence: None)
  Receive Date: 20090924
  Receipt Date: 20090710
  Transmission Date: 20100115
  Serious: No
  Sender: FDA-Public Use
  Company Number: US-ASTRAZENECA-2009UW19491

PATIENT
  Sex: Female

DRUGS (3)
  1. SEROQUEL XR [Suspect]
     Indication: DEPRESSION
     Route: 048
  2. PAXIL [Concomitant]
     Indication: SUICIDAL IDEATION
  3. PRESTIQUE [Concomitant]

REACTIONS (2)
  - ILL-DEFINED DISORDER [None]
  - WEIGHT INCREASED [None]
